FAERS Safety Report 19589958 (Version 1)
Quarter: 2021Q3

REPORT INFORMATION
  Report Type: Spontaneous
  Country: US (occurrence: US)
  Receive Date: 20210721
  Receipt Date: 20210721
  Transmission Date: 20211014
  Serious: Yes (Other)
  Sender: FDA-Public Use
  Company Number: US-JNJFOC-20210742891

PATIENT
  Sex: Female

DRUGS (5)
  1. XARELTO [Suspect]
     Active Substance: RIVAROXABAN
     Indication: PRODUCT USED FOR UNKNOWN INDICATION
     Route: 048
  2. UPTRAVI [Concomitant]
     Active Substance: SELEXIPAG
     Indication: PULMONARY ARTERIAL HYPERTENSION
     Dosage: EVERY AM (MORNING)
     Route: 048
     Dates: start: 20180713
  3. ADEMPAS [Concomitant]
     Active Substance: RIOCIGUAT
  4. ADEMPAS [Concomitant]
     Active Substance: RIOCIGUAT
  5. UPTRAVI [Concomitant]
     Active Substance: SELEXIPAG
     Dosage: EVERY PM (EVENING)
     Route: 048
     Dates: start: 20180713

REACTIONS (2)
  - Dyspepsia [Not Recovered/Not Resolved]
  - Haematochezia [Unknown]
